FAERS Safety Report 8964099 (Version 1)
Quarter: 2012Q4

REPORT INFORMATION
  Report Type: 
  Country: JP (occurrence: JP)
  Receive Date: 20121214
  Receipt Date: 20121214
  Transmission Date: 20130627
  Serious: Yes (Life-Threatening, Hospitalization, Other)
  Sender: FDA-Public Use
  Company Number: JP-009507513-2012SP005929

PATIENT
  Age: 25 Year
  Sex: Female
  Weight: 73 kg

DRUGS (4)
  1. PEGINTRON [Suspect]
     Indication: CHRONIC HEPATITIS C
     Dosage: 150 ?g, QW
     Route: 058
     Dates: start: 20110408, end: 20120113
  2. REBETOL [Suspect]
     Indication: CHRONIC HEPATITIS C
     Dosage: 1000 mg, QD
     Route: 048
     Dates: start: 20110408, end: 20120113
  3. JUVELA N [Concomitant]
     Indication: HEPATIC STEATOSIS
     Dosage: 100 mg, TID
     Route: 048
     Dates: start: 20110819, end: 20120113
  4. LOXONIN [Concomitant]
     Indication: PYREXIA
     Dosage: UNK UNK, PRN
     Route: 048
     Dates: start: 20110411, end: 20120113

REACTIONS (2)
  - Interstitial lung disease [Recovered/Resolved]
  - Staphylococcal sepsis [Unknown]
